FAERS Safety Report 5824609-3 (Version None)
Quarter: 2008Q3

REPORT INFORMATION
  Report Type: 
  Country: None (occurrence: None)
  Receive Date: 20080728
  Receipt Date: 20080716
  Transmission Date: 20090109
  Serious: Yes (Hospitalization, Other)
  Sender: FDA-Public Use
  Company Number: US-ELI_LILLY_AND_COMPANY-US200806000920

PATIENT
  Sex: Female

DRUGS (2)
  1. FORTEO [Suspect]
     Indication: OSTEOPOROSIS
     Dates: start: 20080101, end: 20080101
  2. CALCIUM [Concomitant]
     Indication: OSTEOPOROSIS

REACTIONS (13)
  - ANAEMIA [None]
  - ANAESTHETIC COMPLICATION [None]
  - CONFUSIONAL STATE [None]
  - GASTROOESOPHAGEAL REFLUX DISEASE [None]
  - HYPOKALAEMIA [None]
  - MEMORY IMPAIRMENT [None]
  - OESOPHAGEAL CANDIDIASIS [None]
  - OESOPHAGEAL ULCER [None]
  - POST PROCEDURAL COMPLICATION [None]
  - POST PROCEDURAL OEDEMA [None]
  - TACHYCARDIA [None]
  - TRANSFUSION [None]
  - URINARY TRACT INFECTION [None]
